FAERS Safety Report 23030534 (Version 2)
Quarter: 2023Q4

REPORT INFORMATION
  Report Type: Report from Study
  Country: JP (occurrence: JP)
  Receive Date: 20231005
  Receipt Date: 20231023
  Transmission Date: 20240110
  Serious: Yes (Hospitalization)
  Sender: FDA-Public Use
  Company Number: JP-SERVIER-S22009906

PATIENT
  Age: 69 Year
  Sex: Female
  Weight: 35.2 kg

DRUGS (17)
  1. ONIVYDE [Suspect]
     Active Substance: IRINOTECAN HYDROCHLORIDE
     Indication: Pancreatic carcinoma metastatic
     Dosage: 70 MG/M2
     Route: 042
     Dates: start: 20220805, end: 20220805
  2. ONIVYDE [Suspect]
     Active Substance: IRINOTECAN HYDROCHLORIDE
     Dosage: 60 MG/M2
     Route: 042
     Dates: start: 20220826, end: 20220826
  3. ONIVYDE [Suspect]
     Active Substance: IRINOTECAN HYDROCHLORIDE
     Dosage: 60 MG/M2
     Route: 042
     Dates: start: 20220909, end: 20220909
  4. ONIVYDE [Suspect]
     Active Substance: IRINOTECAN HYDROCHLORIDE
     Dosage: 60 MG/M2
     Route: 042
     Dates: start: 20220922, end: 20220922
  5. GIMERACIL\OTERACIL\TEGAFUR [Suspect]
     Active Substance: GIMERACIL\OTERACIL POTASSIUM\TEGAFUR
     Indication: Pancreatic carcinoma metastatic
     Dosage: 80 MG, UNK
     Route: 048
     Dates: start: 20220805, end: 202208
  6. GIMERACIL\OTERACIL\TEGAFUR [Suspect]
     Active Substance: GIMERACIL\OTERACIL POTASSIUM\TEGAFUR
     Dosage: 80 MG, UNK
     Route: 048
     Dates: start: 20220826, end: 2022
  7. GIMERACIL\OTERACIL\TEGAFUR [Suspect]
     Active Substance: GIMERACIL\OTERACIL POTASSIUM\TEGAFUR
     Dosage: 80 MG, UNK
     Route: 048
     Dates: start: 20220909, end: 2022
  8. GIMERACIL\OTERACIL\TEGAFUR [Suspect]
     Active Substance: GIMERACIL\OTERACIL POTASSIUM\TEGAFUR
     Dosage: 80 MG, UNK
     Route: 048
     Dates: start: 20220922, end: 2022
  9. ALUMINUM SILICATE [Suspect]
     Active Substance: ALUMINUM SILICATE
     Indication: Diarrhoea
     Dosage: 6 G, UNK
     Route: 048
     Dates: start: 20201225
  10. CODEINE PHOSPHATE [Suspect]
     Active Substance: CODEINE PHOSPHATE
     Indication: Antitussive therapy
     Dosage: 120 MG, UNK
     Route: 048
     Dates: start: 20201225
  11. EPLERENONE [Concomitant]
     Active Substance: EPLERENONE
     Indication: Hypertension
     Dosage: 25 MG, UNK
     Dates: start: 20200402
  12. PANCRELIPASE [Concomitant]
     Active Substance: PANCRELIPASE
     Indication: Pancreatic carcinoma metastatic
     Dosage: 1800 MG, UNK
     Dates: start: 20200813
  13. FAMOTIDINE [Concomitant]
     Active Substance: FAMOTIDINE
     Indication: Gastritis prophylaxis
     Dosage: 20 MG, UNK
     Dates: start: 20220826
  14. MIYA-BM [Concomitant]
     Active Substance: CLOSTRIDIUM BUTYRICUM SPORES STRAIN M-55
     Indication: Diarrhoea
     Dosage: 3 G, UNK
     Dates: start: 20201225
  15. ADALAT [Concomitant]
     Active Substance: NIFEDIPINE
     Indication: Hypertension
     Dosage: 20 MG, UNK
     Dates: start: 20201225
  16. URSODIOL [Concomitant]
     Active Substance: URSODIOL
     Indication: Pancreatic carcinoma metastatic
     Dosage: 600 MG, UNK
     Dates: start: 20210806
  17. AZILSARTAN KAMEDOXOMIL [Concomitant]
     Active Substance: AZILSARTAN KAMEDOXOMIL
     Indication: Hypertension
     Dosage: 40 MG, UNK
     Dates: start: 20201225

REACTIONS (13)
  - Enterocolitis haemorrhagic [Recovering/Resolving]
  - Febrile neutropenia [Recovered/Resolved]
  - Anaemia [Recovering/Resolving]
  - Neutrophil count decreased [Not Recovered/Not Resolved]
  - White blood cell count decreased [Not Recovered/Not Resolved]
  - Eastern Cooperative Oncology Group performance status worsened [Recovered/Resolved]
  - Diarrhoea [Recovering/Resolving]
  - Hypokalaemia [Unknown]
  - Platelet count decreased [Unknown]
  - Hypoalbuminaemia [Unknown]
  - Blood creatinine increased [Unknown]
  - Pyrexia [Unknown]
  - Off label use [Unknown]

NARRATIVE: CASE EVENT DATE: 20220812
